FAERS Safety Report 17587425 (Version 1)
Quarter: 2020Q1

REPORT INFORMATION
  Report Type: Spontaneous
  Country: CN (occurrence: CN)
  Receive Date: 20200326
  Receipt Date: 20200326
  Transmission Date: 20200409
  Serious: Yes (Life-Threatening, Other)
  Sender: FDA-Public Use
  Company Number: CN-FRESENIUS KABI-FK202002793

PATIENT
  Age: 52 Year
  Sex: Female
  Weight: 35 kg

DRUGS (2)
  1. NOVAMIN 8.5% [Suspect]
     Active Substance: AMINO ACIDS, SOURCE UNSPECIFIED
     Indication: MALNUTRITION
     Dosage: 500ML QD
     Route: 041
     Dates: start: 20200103, end: 20200103
  2. LIPOVENOES MCT 20% [Suspect]
     Active Substance: EGG PHOSPHOLIPIDS\GLYCERIN\MEDIUM-CHAIN TRIGLYCERIDES\SOYBEAN OIL
     Indication: MALNUTRITION
     Dosage: 150ML QD
     Route: 041
     Dates: start: 20200103, end: 20200103

REACTIONS (7)
  - Chills [Recovering/Resolving]
  - Chest discomfort [Recovering/Resolving]
  - Dyspnoea [Recovering/Resolving]
  - Heart rate increased [Recovering/Resolving]
  - Abdominal distension [Recovering/Resolving]
  - Blood pressure increased [Recovering/Resolving]
  - Discomfort [Recovering/Resolving]

NARRATIVE: CASE EVENT DATE: 20200104
